FAERS Safety Report 17028389 (Version 1)
Quarter: 2019Q4

REPORT INFORMATION
  Report Type: Other
  Country: None (occurrence: US)
  Receive Date: 20191113
  Receipt Date: 20191113
  Transmission Date: 20200122
  Serious: Yes (Life-Threatening, Hospitalization, Other)
  Sender: FDA-Public Use
  Company Number: US-C B FLEET CO INC-201911-US-003719

PATIENT
  Age: 3 Month
  Sex: Male

DRUGS (1)
  1. SODIUM PHOSPHATE [Suspect]
     Active Substance: SODIUM PHOSPHATE
     Indication: CONSTIPATION
     Route: 048

REACTIONS (12)
  - Vomiting [Recovered/Resolved]
  - Intraventricular haemorrhage neonatal [Recovered/Resolved]
  - Hypernatraemia [Recovered/Resolved]
  - Metabolic acidosis [Recovered/Resolved]
  - Feeding intolerance [Recovered/Resolved]
  - Incorrect route of product administration [None]
  - Dyspnoea [Recovered/Resolved]
  - Lethargy [Recovered/Resolved]
  - Hypocalcaemia [Recovered/Resolved]
  - Overdose [None]
  - Product administered to patient of inappropriate age [None]
  - Acute respiratory failure [Recovered/Resolved]
